FAERS Safety Report 21314323 (Version 1)
Quarter: 2022Q3

REPORT INFORMATION
  Report Type: Spontaneous
  Country: US (occurrence: None)
  Receive Date: 20220909
  Receipt Date: 20220909
  Transmission Date: 20221026
  Serious: No
  Sender: FDA-Public Use
  Company Number: US-ARIS GLOBAL-202110-1798

PATIENT
  Age: 71 Year
  Sex: Female

DRUGS (11)
  1. OXERVATE [Suspect]
     Active Substance: CENEGERMIN-BKBJ
     Indication: Neurotrophic keratopathy
     Route: 047
     Dates: start: 20210927
  2. EYE HEALTH AND LUTEIN [Concomitant]
  3. CITRUCEL [Concomitant]
     Active Substance: METHYLCELLULOSE (4000 MPA.S)
  4. VITAMINS [Concomitant]
     Active Substance: VITAMINS
  5. PREVACID [Concomitant]
     Active Substance: LANSOPRAZOLE
  6. PEPCID [Concomitant]
     Active Substance: FAMOTIDINE
  7. CALCIUM [Concomitant]
     Active Substance: CALCIUM
  8. REFRESH CLASSIC [Concomitant]
     Active Substance: POLYVINYL ALCOHOL\POVIDONE
  9. ZIOPTAN [Concomitant]
     Active Substance: TAFLUPROST
  10. ALPHAGAN P [Concomitant]
     Active Substance: BRIMONIDINE TARTRATE
  11. LEVOTHYROXINE [Concomitant]
     Active Substance: LEVOTHYROXINE

REACTIONS (1)
  - Eye pain [Unknown]
